FAERS Safety Report 23573933 (Version 1)
Quarter: 2024Q1

REPORT INFORMATION
  Report Type: Report from Study
  Country: US (occurrence: US)
  Receive Date: 20240228
  Receipt Date: 20240228
  Transmission Date: 20240410
  Serious: Yes (Other)
  Sender: FDA-Public Use
  Company Number: US-ABBVIE-5650812

PATIENT
  Age: 77 Year
  Sex: Female

DRUGS (1)
  1. RINVOQ [Suspect]
     Active Substance: UPADACITINIB
     Indication: Rheumatoid arthritis
     Route: 048
     Dates: start: 202312

REACTIONS (4)
  - Cerebral haemorrhage [Recovered/Resolved]
  - Cataract [Unknown]
  - Fatigue [Unknown]
  - Walking aid user [Unknown]

NARRATIVE: CASE EVENT DATE: 20231201
